FAERS Safety Report 6489780-1 (Version None)
Quarter: 2009Q4

REPORT INFORMATION
  Report Type: 
  Country: None (occurrence: None)
  Receive Date: 20091210
  Receipt Date: 20091210
  Transmission Date: 20100525
  Serious: Yes (Hospitalization)
  Sender: FDA-Public Use
  Company Number: None

PATIENT
  Age: 86 Year
  Sex: Female
  Weight: 60 kg

DRUGS (1)
  1. TRAMADOL HCL [Suspect]
     Indication: ARTHRITIS
     Dosage: 37.5 Q6 PO
     Route: 048

REACTIONS (1)
  - SYNCOPE [None]
